FAERS Safety Report 17984751 (Version 1)
Quarter: 2020Q3

REPORT INFORMATION
  Report Type: Spontaneous
  Country: US (occurrence: US)
  Receive Date: 20200706
  Receipt Date: 20200706
  Transmission Date: 20201103
  Serious: No
  Sender: FDA-Public Use
  Company Number: US-PRINSTON PHARMACEUTICAL INC.-2019PRN00851

PATIENT
  Sex: Female
  Weight: 58.5 kg

DRUGS (4)
  1. UNSPECIFIED NATUROPATHIC MEDICATIONS [Concomitant]
  2. LISINOPRIL. [Suspect]
     Active Substance: LISINOPRIL
     Dosage: 20 MG, 1X/DAY
     Route: 048
     Dates: start: 20190924
  3. LISINOPRIL. [Suspect]
     Active Substance: LISINOPRIL
     Indication: BLOOD PRESSURE ABNORMAL
     Dosage: 20 MG, 1X/DAY
     Route: 048
     Dates: start: 201903, end: 20190921
  4. FISH OIL [Concomitant]
     Active Substance: FISH OIL

REACTIONS (2)
  - Nausea [Not Recovered/Not Resolved]
  - Abdominal discomfort [Not Recovered/Not Resolved]

NARRATIVE: CASE EVENT DATE: 2019
